FAERS Safety Report 10308820 (Version 7)
Quarter: 2015Q2

REPORT INFORMATION
  Report Type: Spontaneous
  Country: US (occurrence: US)
  Receive Date: 20140716
  Receipt Date: 20150410
  Transmission Date: 20150821
  Serious: No
  Sender: FDA-Public Use
  Company Number: US-PFIZER INC-2014055739

PATIENT
  Age: 58 Year
  Sex: Female

DRUGS (21)
  1. COLACE [Concomitant]
     Active Substance: DOCUSATE SODIUM
     Dosage: 100 MG TWICE DAILY
     Route: 048
  2. MS CONTIN [Concomitant]
     Active Substance: MORPHINE SULFATE
     Dosage: 60 MG, EVERY 8 HOURS
     Route: 048
  3. CALCIUM [Concomitant]
     Active Substance: CALCIUM
     Dosage: 600 MG, ONCE DAILY
     Route: 048
  4. LYRICA [Suspect]
     Active Substance: PREGABALIN
     Dosage: 300 MG, 2X/DAY
     Route: 048
     Dates: start: 20150324
  5. VIVELLE-DOT [Concomitant]
     Active Substance: ESTRADIOL
     Dosage: 0.0375 MG/24HR PATCH BI WEEKLY, 1 PATCH ONTO THE SKIN TWICE WEEKLY
  6. ROBAXIN [Concomitant]
     Active Substance: METHOCARBAMOL
     Dosage: 750 MG, TWICE DAILY
     Route: 048
  7. LYRICA [Suspect]
     Active Substance: PREGABALIN
     Dosage: 75 MG, DAILY
     Route: 048
     Dates: start: 20150324
  8. LOVAZA [Concomitant]
     Active Substance: OMEGA-3-ACID ETHYL ESTERS
     Dosage: 1 G CAPS, 2 G BY MOUTH TWICE DAILY
     Route: 048
  9. PROVERA [Concomitant]
     Active Substance: MEDROXYPROGESTERONE ACETATE
     Dosage: 2.5 MG, ONCE DAILY
     Route: 048
  10. TENORMIN [Concomitant]
     Active Substance: ATENOLOL
     Dosage: 25 MG, ONCE DAILY
     Route: 048
  11. BABY ASPIRIN [Concomitant]
     Active Substance: ASPIRIN
     Dosage: 81 MG,  ONCE DAILY
     Route: 048
  12. ATENOLOL. [Concomitant]
     Active Substance: ATENOLOL
  13. VITAMIN D3 [Concomitant]
     Active Substance: CHOLECALCIFEROL
     Dosage: 2000 IU, ONCE DAILY
     Route: 048
  14. LYRICA [Suspect]
     Active Substance: PREGABALIN
     Dosage: 300 MG, ONE CAPSULE BY MOUTH TWICE DAILY.
     Route: 048
     Dates: start: 20140218
  15. DEXILANT [Concomitant]
     Active Substance: DEXLANSOPRAZOLE
     Dosage: 60 MG, 1 CAP BY MOUTH EVERY MORNING BEFORE
     Route: 048
  16. POTASSIUM [Concomitant]
     Active Substance: POTASSIUM
     Dosage: 99 MG, ONCE DAILY
     Route: 048
  17. GLUCOSAMINE CHONDROIT COLLAGEN [Concomitant]
     Dosage: 1 TAB, ONCE DAILY
     Route: 048
  18. LYRICA [Suspect]
     Active Substance: PREGABALIN
     Dosage: 75 MG, ONE CAPSULE BY MOUTH EACH MORNING
     Route: 048
     Dates: start: 20140218
  19. MAGNESIUM [Concomitant]
     Active Substance: MAGNESIUM
     Dosage: 250 MG, ONCE DAILY
     Route: 048
  20. ASA [Concomitant]
     Active Substance: ASPIRIN
  21. OMEPRAZOLE. [Concomitant]
     Active Substance: OMEPRAZOLE

REACTIONS (4)
  - Pain [Unknown]
  - Pain in extremity [Unknown]
  - Dry mouth [Unknown]
  - Neuropathy peripheral [Unknown]
